FAERS Safety Report 7610449-1 (Version None)
Quarter: 2011Q3

REPORT INFORMATION
  Report Type: 
  Country: None (occurrence: None)
  Receive Date: 20110715
  Receipt Date: 20110711
  Transmission Date: 20111222
  Serious: Yes (Other)
  Sender: FDA-Public Use
  Company Number: CA-SP-2011-04555

PATIENT
  Age: 69 Year
  Sex: Female

DRUGS (1)
  1. TUBERSOL [Suspect]
     Indication: TUBERCULIN TEST
     Dosage: NOT REPORTED
     Route: 065

REACTIONS (8)
  - ANXIETY [None]
  - DIZZINESS [None]
  - FLUSHING [None]
  - CHEST DISCOMFORT [None]
  - FEELING HOT [None]
  - HYPERHIDROSIS [None]
  - THROAT TIGHTNESS [None]
  - DYSPHAGIA [None]
